FAERS Safety Report 11216763 (Version 1)
Quarter: 2015Q2

REPORT INFORMATION
  Report Type: Spontaneous
  Country: US (occurrence: US)
  Receive Date: 20150624
  Receipt Date: 20150624
  Transmission Date: 20150821
  Serious: Yes (Other)
  Sender: FDA-Public Use
  Company Number: US-PFIZER INC-2015207195

PATIENT
  Sex: Male

DRUGS (1)
  1. LYRICA [Suspect]
     Active Substance: PREGABALIN
     Indication: OSTEOARTHRITIS
     Dosage: UNK

REACTIONS (6)
  - Arthralgia [Unknown]
  - Fibromyalgia [Unknown]
  - Seizure [Unknown]
  - Arthritis [Unknown]
  - Activities of daily living impaired [Unknown]
  - Product use issue [Unknown]
